FAERS Safety Report 26130092 (Version 2)
Quarter: 2025Q4

REPORT INFORMATION
  Report Type: Spontaneous
  Country: US (occurrence: US)
  Receive Date: 20251208
  Receipt Date: 20251221
  Transmission Date: 20260117
  Serious: Yes (Life-Threatening)
  Sender: ALEXION PHARMACEUTICALS
  Company Number: US-ASTRAZENECA-202512GLO002159US

PATIENT
  Age: 66 Year
  Sex: Female

DRUGS (4)
  1. ROSUVASTATIN [Interacting]
     Active Substance: ROSUVASTATIN
     Indication: Hyperlipidaemia
     Route: 065
  2. ABEMACICLIB [Interacting]
     Active Substance: ABEMACICLIB
     Indication: Invasive ductal breast carcinoma
     Route: 065
  3. LEVOTHYROXINE [Concomitant]
     Active Substance: LEVOTHYROXINE
     Indication: Hypothyroidism
     Dosage: 20 MILLIGRAM
     Route: 065
  4. LEVOTHYROXINE [Concomitant]
     Active Substance: LEVOTHYROXINE
     Dosage: 40 MILLIGRAM
     Route: 065

REACTIONS (3)
  - Rhabdomyolysis [Unknown]
  - Acute kidney injury [Unknown]
  - Drug interaction [Recovered/Resolved]
